FAERS Safety Report 6631776-0 (Version None)
Quarter: 2010Q1

REPORT INFORMATION
  Report Type: 
  Country: None (occurrence: None)
  Receive Date: 20100312
  Receipt Date: 20100303
  Transmission Date: 20100710
  Serious: Yes (Hospitalization)
  Sender: FDA-Public Use
  Company Number: US-SANOFI-AVENTIS-2010SA000075

PATIENT
  Age: 83 Year
  Sex: Female

DRUGS (3)
  1. PLAVIX [Suspect]
     Route: 048
     Dates: start: 20070101, end: 20091228
  2. HYDROCHLOROTHIAZIDE [Concomitant]
     Route: 048
  3. ATENOLOL [Concomitant]
     Route: 048

REACTIONS (4)
  - ABDOMINAL PAIN UPPER [None]
  - ASTHENIA [None]
  - HAEMATEMESIS [None]
  - OBSTRUCTION GASTRIC [None]
